FAERS Safety Report 12690414 (Version 1)
Quarter: 2016Q3

REPORT INFORMATION
  Report Type: Spontaneous
  Country: US (occurrence: US)
  Receive Date: 20160826
  Receipt Date: 20160826
  Transmission Date: 20161109
  Serious: No
  Sender: FDA-Public Use
  Company Number: US-FRI-1000083087

PATIENT
  Age: 24 Year
  Sex: Male
  Weight: 83.18 kg

DRUGS (7)
  1. LEXAPRO [Suspect]
     Active Substance: ESCITALOPRAM OXALATE
     Indication: DEPRESSION
     Dosage: 40MG
     Dates: start: 201403
  2. LAMICTAL [Suspect]
     Active Substance: LAMOTRIGINE
     Indication: BIPOLAR II DISORDER
     Dosage: 400MG
     Route: 048
  3. LITHIUM. [Suspect]
     Active Substance: LITHIUM
     Indication: BIPOLAR II DISORDER
     Dosage: 30MG
     Route: 048
  4. LITHIUM. [Suspect]
     Active Substance: LITHIUM
     Indication: DEPRESSION
  5. LATUDA [Suspect]
     Active Substance: LURASIDONE HYDROCHLORIDE
     Indication: BIPOLAR II DISORDER
     Dosage: 120MG
     Route: 048
     Dates: start: 2012
  6. RISPERDAL [Suspect]
     Active Substance: RISPERIDONE
     Indication: BIPOLAR II DISORDER
     Dosage: 0.5MG
     Route: 048
     Dates: start: 2011
  7. E-CIGS [Concomitant]
     Dosage: 1 PACK A DAY

REACTIONS (5)
  - Ejaculation failure [Recovered/Resolved]
  - Erectile dysfunction [Not Recovered/Not Resolved]
  - Prescribed overdose [Not Recovered/Not Resolved]
  - Erection increased [Recovered/Resolved with Sequelae]
  - Disturbance in sexual arousal [Not Recovered/Not Resolved]

NARRATIVE: CASE EVENT DATE: 20160221
